FAERS Safety Report 24678261 (Version 2)
Quarter: 2025Q1

REPORT INFORMATION
  Report Type: Spontaneous
  Country: HU (occurrence: HU)
  Receive Date: 20241129
  Receipt Date: 20250107
  Transmission Date: 20250408
  Serious: Yes (Other)
  Sender: UCB
  Company Number: HU-UCBSA-2024061486

PATIENT
  Age: 58 Year
  Sex: Male
  Weight: 102 kg

DRUGS (2)
  1. BIMZELX [Suspect]
     Active Substance: BIMEKIZUMAB-BKZX
     Indication: Psoriasis
     Dosage: 320 MILLIGRAM, EV 4 WEEKS
     Route: 058
     Dates: start: 20240515, end: 20241120
  2. BIMZELX [Suspect]
     Active Substance: BIMEKIZUMAB-BKZX
     Dosage: 320 MILLIGRAM, EV 8 WEEKS
     Route: 058
     Dates: start: 2024, end: 2024

REACTIONS (2)
  - Adenocarcinoma of colon [Recovering/Resolving]
  - Colectomy [Recovering/Resolving]

NARRATIVE: CASE EVENT DATE: 20241120
